FAERS Safety Report 8777276 (Version 4)
Quarter: 2012Q4

REPORT INFORMATION
  Report Type: 
  Country: TR (occurrence: TR)
  Receive Date: 20120911
  Receipt Date: 20121112
  Transmission Date: 20130627
  Serious: Yes (Death, Hospitalization, Other)
  Sender: FDA-Public Use
  Company Number: TR-BAYER-2012-082506

PATIENT
  Age: 54 Year
  Sex: Male

DRUGS (2)
  1. SORAFENIB (RAF KINASE INHIBITOR) [Suspect]
     Indication: CARCINOMA HEPATOCELLULAR
     Dosage: 800 mg, QD
     Route: 048
     Dates: start: 20120731
  2. SORAFENIB (RAF KINASE INHIBITOR) [Suspect]
     Indication: CARCINOMA HEPATOCELLULAR
     Dosage: 400 mg, QD
     Dates: start: 20120810, end: 201209

REACTIONS (9)
  - Depressed level of consciousness [Not Recovered/Not Resolved]
  - Speech disorder [Not Recovered/Not Resolved]
  - Pyrexia [None]
  - Cough [None]
  - Decreased appetite [Not Recovered/Not Resolved]
  - Abdominal distension [Not Recovered/Not Resolved]
  - Weight decreased [Not Recovered/Not Resolved]
  - Dysphagia [None]
  - Hepatic failure [Fatal]
